FAERS Safety Report 9496671 (Version 2)
Quarter: 2013Q3

REPORT INFORMATION
  Report Type: Spontaneous
  Country: JP (occurrence: JP)
  Receive Date: 20130904
  Receipt Date: 20130904
  Transmission Date: 20140515
  Serious: Yes (Other)
  Sender: FDA-Public Use
  Company Number: PHHY2013JP090960

PATIENT
  Age: 78 Year
  Sex: Female

DRUGS (8)
  1. CEFEPIME HYDROCHLORIDE [Suspect]
     Indication: ENDOCARDITIS
     Dosage: 4 G/DAY
     Route: 042
  2. CEFTRIAXONE SODIUM [Suspect]
     Dosage: 2 G/DAY
     Route: 042
  3. GENTAMICIN [Suspect]
     Dosage: 80 MG/DAY
     Route: 042
  4. VANCOMYCIN HYDROCHLORIDE [Suspect]
     Dosage: 1 G/ DAY
     Route: 065
  5. CEFAZOLIN SODIUM [Suspect]
     Dosage: 3 G, UNK
     Route: 042
  6. MEROPENEM [Suspect]
     Dosage: 1.5 G/DAY
  7. SULBACTAM-AMPICILLIN [Suspect]
  8. GAMMA-GLOBULIN [Concomitant]
     Dosage: 5 G/DAY

REACTIONS (2)
  - Inflammation [Recovered/Resolved]
  - Pyrexia [Recovered/Resolved]
